FAERS Safety Report 12657165 (Version 3)
Quarter: 2017Q3

REPORT INFORMATION
  Report Type: Spontaneous
  Country: US (occurrence: US)
  Receive Date: 20160816
  Receipt Date: 20170818
  Transmission Date: 20171127
  Serious: No
  Sender: FDA-Public Use
  Company Number: US-ENDO PHARMACEUTICALS INC.-2016-003670

PATIENT
  Sex: Female
  Weight: 81.72 kg

DRUGS (1)
  1. SUMAVEL DOSEPRO [Suspect]
     Active Substance: SUMATRIPTAN SUCCINATE
     Indication: MIGRAINE
     Route: 058
     Dates: start: 20150305

REACTIONS (4)
  - Device malfunction [Recovered/Resolved]
  - Accidental exposure to product [Recovered/Resolved]
  - Erythema [Recovered/Resolved]
  - Incorrect dose administered by device [Recovered/Resolved]
